FAERS Safety Report 18689290 (Version 1)
Quarter: 2020Q4

REPORT INFORMATION
  Report Type: Spontaneous
  Country: TH (occurrence: TH)
  Receive Date: 20201231
  Receipt Date: 20201231
  Transmission Date: 20210114
  Serious: Yes (Hospitalization)
  Sender: FDA-Public Use
  Company Number: TH-LUPIN PHARMACEUTICALS INC.-2020-08431

PATIENT
  Age: 32 Year
  Sex: Male

DRUGS (8)
  1. AZITHROMYCIN ANHYDROUS. [Suspect]
     Active Substance: AZITHROMYCIN ANHYDROUS
     Indication: MYCOBACTERIUM HAEMOPHILUM INFECTION
     Dosage: 1.5 PERCENT
     Route: 061
  2. AMIKACIN. [Suspect]
     Active Substance: AMIKACIN
     Indication: MYCOBACTERIUM HAEMOPHILUM INFECTION
     Dosage: UNK
     Route: 048
  3. MOXIFLOXACIN HYDROCHLORIDE. [Suspect]
     Active Substance: MOXIFLOXACIN HYDROCHLORIDE
     Dosage: UNK
     Route: 048
  4. RIFAMPIN. [Suspect]
     Active Substance: RIFAMPIN
     Indication: MYCOBACTERIUM HAEMOPHILUM INFECTION
     Dosage: UNK
     Route: 048
  5. MOXIFLOXACIN HYDROCHLORIDE. [Suspect]
     Active Substance: MOXIFLOXACIN HYDROCHLORIDE
     Indication: MYCOBACTERIUM HAEMOPHILUM INFECTION
     Dosage: 0.5 PERCENT (EYE DROP)
     Route: 061
  6. CLARITHROMYCIN. [Suspect]
     Active Substance: CLARITHROMYCIN
     Indication: MYCOBACTERIUM HAEMOPHILUM INFECTION
     Dosage: UNK
     Route: 048
  7. ACYCLOVIR [ACICLOVIR] [Concomitant]
     Active Substance: ACYCLOVIR
     Indication: HERPES VIRUS INFECTION
     Dosage: 400 MILLIGRAM (5 TIMES A DAY)
     Route: 048
  8. AMIKACIN. [Suspect]
     Active Substance: AMIKACIN
     Dosage: 5 PERCENT
     Route: 061

REACTIONS (1)
  - Drug ineffective [Unknown]
